FAERS Safety Report 5423704-0 (Version None)
Quarter: 2007Q3

REPORT INFORMATION
  Report Type: 
  Country: None (occurrence: None)
  Receive Date: 20070725
  Receipt Date: 20070330
  Transmission Date: 20080115
  Serious: Yes (Other)
  Sender: FDA-Public Use
  Company Number: US200703006769

PATIENT
  Age: 8 Year
  Sex: Male
  Weight: 28.1 kg

DRUGS (1)
  1. STRATTERA [Suspect]
     Indication: ANXIETY
     Dosage: 10 MG, DAILY (1/D)
     Dates: start: 20070310

REACTIONS (5)
  - AGGRESSION [None]
  - ANGER [None]
  - DRUG INEFFECTIVE [None]
  - HOSTILITY [None]
  - SUICIDAL IDEATION [None]
